FAERS Safety Report 9350062 (Version 2)
Quarter: 2013Q4

REPORT INFORMATION
  Report Type: Other
  Country: GB (occurrence: GB)
  Receive Date: 20130615
  Receipt Date: 20131203
  Transmission Date: 20140711
  Serious: Yes (Other)
  Sender: FDA-Public Use
  Company Number: GB-SUN PHARMACEUTICAL INDUSTRIES LTD-2013SUN00722

PATIENT
  Age: 74 Year
  Sex: Female
  Weight: 64.7 kg

DRUGS (6)
  1. CARBOPLATIN 10 MG/ML CONCENTRATE FOR SOLUTION FOR INFUSION [Suspect]
     Indication: OVARIAN CANCER
     Dosage: 480 MG, 3 PER 52 DAYS
     Route: 042
     Dates: start: 20120704, end: 20121031
  2. ABRAXANE [Suspect]
     Indication: OVARIAN CANCER
     Dosage: 440 MG, 3 PER 52 DAYS
     Route: 042
     Dates: start: 20120913, end: 20121002
  3. APREPITANT [Concomitant]
     Indication: ANTIEMETIC SUPPORTIVE CARE
     Dosage: 125 MG, UNK
     Route: 048
     Dates: start: 20120823, end: 20121031
  4. DEXAMETHASONE [Concomitant]
     Indication: ANTIEMETIC SUPPORTIVE CARE
     Dosage: 8 MG, UNK
     Route: 042
     Dates: start: 20120704, end: 20121031
  5. GLUCOSAMINE [Concomitant]
     Indication: ARTHRITIS
     Route: 048
  6. ONDANSETRON [Concomitant]
     Indication: ANTIEMETIC SUPPORTIVE CARE
     Dosage: 8 MG, UNK
     Route: 042
     Dates: start: 20120704, end: 20121031

REACTIONS (3)
  - Skin odour abnormal [Recovered/Resolved]
  - Skin burning sensation [Recovered/Resolved]
  - Nausea [Recovered/Resolved]
